FAERS Safety Report 4838559-2 (Version None)
Quarter: 2005Q4

REPORT INFORMATION
  Report Type: 
  Country: None (occurrence: None)
  Receive Date: 20051123
  Receipt Date: 20051108
  Transmission Date: 20060501
  Serious: Yes (Death)
  Sender: FDA-Public Use
  Company Number: 2005S1010989

PATIENT
  Sex: Male

DRUGS (3)
  1. CLOZAPINE [Suspect]
     Dosage: 300 MG; BID; ORAL
     Route: 048
     Dates: start: 20050325
  2. SERTRALINE HCL [Concomitant]
  3. HYDROCHLORIDE [Concomitant]

REACTIONS (1)
  - DEATH [None]
